FAERS Safety Report 6955507-X (Version None)
Quarter: 2010Q3

REPORT INFORMATION
  Report Type: 
  Country: None (occurrence: None)
  Receive Date: 20100830
  Receipt Date: 20100819
  Transmission Date: 20110219
  Serious: Yes (Hospitalization)
  Sender: FDA-Public Use
  Company Number: US-BRISTOL-MYERS SQUIBB COMPANY-15247596

PATIENT
  Age: 61 Year
  Sex: Female

DRUGS (9)
  1. ONGLYZA [Suspect]
  2. BENICAR [Concomitant]
  3. ZETIA [Concomitant]
  4. PRAVASTATIN [Concomitant]
  5. ATENOLOL [Concomitant]
  6. MAVIK [Concomitant]
  7. STARLIX [Concomitant]
  8. METFORMIN HCL [Concomitant]
  9. GLYBURIDE [Concomitant]

REACTIONS (1)
  - PANCREATITIS [None]
